FAERS Safety Report 9033589 (Version 2)
Quarter: 2013Q1

REPORT INFORMATION
  Report Type: Spontaneous
  Country: US (occurrence: US)
  Receive Date: 20130128
  Receipt Date: 20130312
  Transmission Date: 20140127
  Serious: Yes (Other)
  Sender: FDA-Public Use
  Company Number: US-ELI_LILLY_AND_COMPANY-US201301006507

PATIENT
  Sex: Female

DRUGS (1)
  1. CYMBALTA [Suspect]
     Indication: DEPRESSION
     Dosage: 60 MG, QD

REACTIONS (6)
  - Suicidal ideation [Recovered/Resolved]
  - Drug withdrawal syndrome [Unknown]
  - Irritability [Unknown]
  - Confusional state [Unknown]
  - Mental impairment [Unknown]
  - Depression [Unknown]
